FAERS Safety Report 10768421 (Version 3)
Quarter: 2015Q3

REPORT INFORMATION
  Report Type: Spontaneous
  Country: US (occurrence: US)
  Receive Date: 20150206
  Receipt Date: 20150707
  Transmission Date: 20151125
  Serious: No
  Sender: FDA-Public Use
  Company Number: US-AMGEN-USASP2015010821

PATIENT
  Age: 40 Year
  Sex: Male
  Weight: 104.31 kg

DRUGS (1)
  1. ENBREL [Suspect]
     Active Substance: ETANERCEPT
     Indication: RHEUMATOID ARTHRITIS
     Dosage: 50 MG, QWK (ONCE PER WEEK)
     Route: 058
     Dates: start: 20130802, end: 20150103

REACTIONS (3)
  - Pain [Not Recovered/Not Resolved]
  - Skin papilloma [Unknown]
  - Musculoskeletal stiffness [Not Recovered/Not Resolved]

NARRATIVE: CASE EVENT DATE: 2013
